FAERS Safety Report 5162150-4 (Version None)
Quarter: 2006Q4

REPORT INFORMATION
  Report Type: 
  Country: None (occurrence: None)
  Receive Date: 20061121
  Receipt Date: 20061108
  Transmission Date: 20070319
  Serious: Yes (Other)
  Sender: FDA-Public Use
  Company Number: HQWYE876108NOV06

PATIENT
  Age: 51 Year
  Sex: Female

DRUGS (3)
  1. AMIODARONE HCL [Suspect]
     Indication: ATRIAL FIBRILLATION
     Dosage: INTRAVENOUS
     Route: 042
  2. FUROSEMIDE [Concomitant]
  3. SPIRONOLACTONE [Concomitant]

REACTIONS (5)
  - BLOOD PRESSURE INCREASED [None]
  - BODY TEMPERATURE INCREASED [None]
  - BRUGADA SYNDROME [None]
  - ELECTROCARDIOGRAM ST SEGMENT ELEVATION [None]
  - ELECTROCARDIOGRAM T WAVE INVERSION [None]
